FAERS Safety Report 11286127 (Version 1)
Quarter: 2015Q3

REPORT INFORMATION
  Report Type: Spontaneous
  Country: CO (occurrence: None)
  Receive Date: 20150717
  Receipt Date: 20150717
  Transmission Date: 20151125
  Serious: Yes (Other)
  Sender: FDA-Public Use
  Company Number: 2015-11747

PATIENT
  Age: 44 Year
  Sex: Female

DRUGS (1)
  1. EYLEA [Suspect]
     Active Substance: AFLIBERCEPT
     Indication: MACULAR OEDEMA
     Dosage: 1 DF DOSAGE FORM,
     Dates: start: 20150115

REACTIONS (1)
  - Renal failure [None]

NARRATIVE: CASE EVENT DATE: 20150215
